FAERS Safety Report 9226836 (Version 1)
Quarter: 2013Q2

REPORT INFORMATION
  Report Type: Spontaneous
  Country: US (occurrence: None)
  Receive Date: 20130410
  Receipt Date: 20130410
  Transmission Date: 20140414
  Serious: Yes (Other)
  Sender: FDA-Public Use
  Company Number: 2013030127

PATIENT
  Age: 2 Month
  Sex: Male
  Weight: 5.9 kg

DRUGS (1)
  1. PREFERAOB + DHA [Suspect]
     Dosage: 1 IN 1 D, TRANSMAMMARY
     Dates: start: 20130209

REACTIONS (3)
  - Exposure during breast feeding [None]
  - Haematochezia [None]
  - Mucous stools [None]
